FAERS Safety Report 9172316 (Version 2)
Quarter: 2013Q2

REPORT INFORMATION
  Report Type: Spontaneous
  Country: US (occurrence: US)
  Receive Date: 20130319
  Receipt Date: 20130410
  Transmission Date: 20140414
  Serious: Yes (Other)
  Sender: FDA-Public Use
  Company Number: US-US-EMD SERONO, INC.-7047798

PATIENT
  Sex: Female

DRUGS (1)
  1. REBIF [Suspect]
     Indication: PRODUCT USED FOR UNKNOWN INDICATION
     Route: 058
     Dates: start: 20100318

REACTIONS (4)
  - Parathyroid tumour benign [Recovering/Resolving]
  - Hyperparathyroidism primary [Unknown]
  - Blood urea increased [Recovering/Resolving]
  - Nausea [Recovering/Resolving]
